FAERS Safety Report 10044849 (Version 1)
Quarter: 2014Q1

REPORT INFORMATION
  Report Type: Spontaneous
  Country: TW (occurrence: TW)
  Receive Date: 20140328
  Receipt Date: 20140328
  Transmission Date: 20141002
  Serious: Yes (Other)
  Sender: FDA-Public Use
  Company Number: PHHY2014TW037617

PATIENT
  Age: 59 Year
  Sex: Female

DRUGS (3)
  1. CICLOSPORIN [Suspect]
     Indication: IMMUNOSUPPRESSION
  2. METHYLPREDNISOLONE [Suspect]
     Indication: IMMUNOSUPPRESSION
  3. MYFORTIC [Concomitant]
     Indication: IMMUNOSUPPRESSION

REACTIONS (9)
  - Peliosis hepatis [Not Recovered/Not Resolved]
  - Abdominal distension [Unknown]
  - Hepatic function abnormal [Not Recovered/Not Resolved]
  - Hepatic neoplasm [Unknown]
  - Hepatic lesion [Unknown]
  - Ascites [Unknown]
  - Hepatic infiltration eosinophilic [Unknown]
  - Peritoneal haemorrhage [Not Recovered/Not Resolved]
  - Shock haemorrhagic [Unknown]
